FAERS Safety Report 8465857-6 (Version None)
Quarter: 2012Q2

REPORT INFORMATION
  Report Type: 
  Country: None (occurrence: None)
  Receive Date: 20120619
  Receipt Date: 20120605
  Transmission Date: 20120825
  Serious: Yes (Other)
  Sender: FDA-Public Use
  Company Number: ENTC2012-0163

PATIENT
  Age: 64 Year
  Sex: Female

DRUGS (2)
  1. STALEVO 50 [Suspect]
     Indication: PARKINSON'S DISEASE
     Dosage: 2 TABLETS (150/37.5/200 MG) PER DAY, ORAL
     Route: 048
     Dates: start: 20120110, end: 20120501
  2. LYRICA [Concomitant]

REACTIONS (2)
  - TRISMUS [None]
  - SPEECH DISORDER [None]
